FAERS Safety Report 7555311-8 (Version None)
Quarter: 2011Q2

REPORT INFORMATION
  Report Type: 
  Country: None (occurrence: None)
  Receive Date: 20110617
  Receipt Date: 20110604
  Transmission Date: 20111010
  Serious: Yes (Other)
  Sender: FDA-Public Use
  Company Number: PHHY2011BR49934

PATIENT
  Sex: Male

DRUGS (1)
  1. EXFORGE [Suspect]
     Dosage: 160 MG VALS AND 5 MG AMLO

REACTIONS (5)
  - APNOEA [None]
  - INFARCTION [None]
  - AGITATION [None]
  - BLOOD PRESSURE INCREASED [None]
  - HEADACHE [None]
